FAERS Safety Report 10030206 (Version 1)
Quarter: 2014Q1

REPORT INFORMATION
  Report Type: Spontaneous
  Country: US (occurrence: US)
  Receive Date: 20140323
  Receipt Date: 20140323
  Transmission Date: 20141002
  Serious: No
  Sender: FDA-Public Use
  Company Number: US-ALLERGAN-1310159US

PATIENT
  Age: 74 Year
  Sex: Female

DRUGS (12)
  1. LATISSE 0.03% [Suspect]
     Indication: GROWTH OF EYELASHES
     Dosage: 2 GTT, UNK
     Route: 061
  2. DILTIAZEM [Concomitant]
     Indication: HYPOTENSION
     Dosage: UNK
     Route: 048
  3. VALTREX [Concomitant]
     Indication: HERPES VIRUS INFECTION
     Dosage: 500 MG, QD
     Route: 048
  4. LEVOTHYROXINE [Concomitant]
     Indication: HYPOTHYROIDISM
     Dosage: 0.75 MG, QD
     Route: 048
  5. PROVIGIL                           /01265601/ [Concomitant]
     Indication: SLEEP APNOEA SYNDROME
     Dosage: 200 MG, QD
     Route: 048
  6. WELLBUTRIN [Concomitant]
     Indication: ANXIETY
     Dosage: 150 MG, QD
     Route: 048
  7. ENTOCORT [Concomitant]
     Indication: GASTROINTESTINAL DISORDER
     Dosage: 3 MG, PRN
     Route: 048
  8. LOTEMAX [Concomitant]
     Indication: DRY EYE
     Dosage: UNK
     Route: 047
  9. LOTEMAX GEL [Concomitant]
     Indication: DRY EYE
     Dosage: UNK
     Route: 047
  10. OMEGA 3                            /01333901/ [Concomitant]
     Indication: SUPPLEMENTATION THERAPY
     Dosage: UNK
  11. OASIS PLUS NOS [Concomitant]
     Indication: EYE LUBRICATION THERAPY
     Dosage: UNK, PRN
     Route: 047
  12. BOTOX COSMETIC [Concomitant]
     Indication: BLEPHAROSPASM

REACTIONS (2)
  - Skin discolouration [Unknown]
  - Inappropriate schedule of drug administration [Unknown]
